FAERS Safety Report 14517866 (Version 2)
Quarter: 2018Q1

REPORT INFORMATION
  Report Type: Spontaneous
  Country: US (occurrence: US)
  Receive Date: 20180212
  Receipt Date: 20180213
  Transmission Date: 20180509
  Serious: No
  Sender: FDA-Public Use
  Company Number: US-PFIZER INC-2018056838

PATIENT
  Age: 78 Year
  Sex: Male
  Weight: 74.84 kg

DRUGS (2)
  1. SILDENAFIL CITRATE. [Suspect]
     Active Substance: SILDENAFIL CITRATE
     Indication: ERECTILE DYSFUNCTION
     Dosage: 50 MG, ONCE OR TWICE A WEEK
     Route: 048
     Dates: start: 201801
  2. ZOCOR [Concomitant]
     Active Substance: SIMVASTATIN
     Indication: BLOOD CHOLESTEROL INCREASED
     Dosage: 12 MG, 1X/DAY (EVENING HOURS)

REACTIONS (1)
  - Drug ineffective [Unknown]
